FAERS Safety Report 6369501-3 (Version None)
Quarter: 2009Q3

REPORT INFORMATION
  Report Type: 
  Country: None (occurrence: None)
  Receive Date: 20090923
  Receipt Date: 20090914
  Transmission Date: 20100115
  Serious: Yes (Other)
  Sender: FDA-Public Use
  Company Number: US-SANOFI-SYNTHELABO-A03200902726

PATIENT
  Sex: Male

DRUGS (5)
  1. ZOCOR [Concomitant]
     Indication: DRUG USE FOR UNKNOWN INDICATION
     Dosage: UNK
     Route: 065
  2. FLUOXETINE [Concomitant]
     Indication: DEPRESSION
     Dosage: UNK
     Route: 065
  3. MIRTAZAPINE [Concomitant]
     Indication: TINNITUS
     Dosage: UNK
     Route: 065
  4. LORATADINE [Concomitant]
     Indication: SEASONAL ALLERGY
     Dosage: UNK
     Route: 065
  5. ZOLPIDEM [Suspect]
     Indication: SLEEP DISORDER
     Dosage: UNK
     Route: 048

REACTIONS (5)
  - AMNESIA [None]
  - MEDICATION ERROR [None]
  - MUSCLE STRAIN [None]
  - ROAD TRAFFIC ACCIDENT [None]
  - SOMNAMBULISM [None]
